FAERS Safety Report 21087014 (Version 1)
Quarter: 2022Q3

REPORT INFORMATION
  Report Type: Report from Study
  Country: US (occurrence: US)
  Receive Date: 20220715
  Receipt Date: 20220715
  Transmission Date: 20221026
  Serious: Yes (Other)
  Sender: FDA-Public Use
  Company Number: US-MYLANLABS-2022M1051795

PATIENT
  Age: 73 Year
  Sex: Male

DRUGS (3)
  1. DOXYCYCLINE [Suspect]
     Active Substance: DOXYCYCLINE
     Indication: Cutaneous T-cell lymphoma
     Dosage: 100 MILLIGRAM, BID (RECEIVED 100MG PER FLAT DOSE)
     Route: 048
  2. ALDARA [Suspect]
     Active Substance: IMIQUIMOD
     Indication: Cutaneous T-cell lymphoma
     Dosage: 500 MILLIGRAM (RECEIVED 500MG PER FLAT DOSE TWICE DAILY)
     Route: 061
  3. ZYCLARA [Suspect]
     Active Substance: IMIQUIMOD
     Indication: Cutaneous T-cell lymphoma
     Dosage: 500 MILLIGRAM, BID (RECEIVED 500MG PER FLAT DOSE TWICE DAILY)
     Route: 061

REACTIONS (2)
  - Drug ineffective for unapproved indication [Unknown]
  - Off label use [Unknown]
